FAERS Safety Report 9411130 (Version 1)
Quarter: 2013Q3

REPORT INFORMATION
  Report Type: Spontaneous
  Country: MX (occurrence: MX)
  Receive Date: 20130721
  Receipt Date: 20130721
  Transmission Date: 20140515
  Serious: Yes (Other)
  Sender: FDA-Public Use
  Company Number: PHHY2013MX077068

PATIENT
  Age: 58 Year
  Sex: Male

DRUGS (2)
  1. TRILEPTAL [Suspect]
     Indication: DEPRESSION
     Dosage: THREE TABLETS DAILY
     Route: 048
     Dates: start: 200601
  2. TRILEPTAL [Suspect]
     Indication: OFF LABEL USE

REACTIONS (5)
  - Bipolar disorder [Not Recovered/Not Resolved]
  - Psychotic disorder [Not Recovered/Not Resolved]
  - Disturbance in social behaviour [Not Recovered/Not Resolved]
  - Hypertension [Not Recovered/Not Resolved]
  - Depression [Not Recovered/Not Resolved]
